FAERS Safety Report 23227408 (Version 2)
Quarter: 2023Q4

REPORT INFORMATION
  Report Type: Spontaneous
  Country: US (occurrence: US)
  Receive Date: 20231124
  Receipt Date: 20231127
  Transmission Date: 20240110
  Serious: No
  Sender: FDA-Public Use
  Company Number: US-BAYER-2023A167615

PATIENT
  Age: 74 Year
  Sex: Female
  Weight: 73.5 kg

DRUGS (5)
  1. ALEVE [Suspect]
     Active Substance: NAPROXEN SODIUM
  2. ASPIRIN [Suspect]
     Active Substance: ASPIRIN
  3. IBRANCE [Suspect]
     Active Substance: PALBOCICLIB
     Indication: Hormone receptor positive breast cancer
     Dosage: 100 MG, QD , 21 DAYS 7 DAYS OFF
     Route: 048
     Dates: start: 20230621
  4. IBRANCE [Suspect]
     Active Substance: PALBOCICLIB
     Indication: HER2 negative breast cancer
  5. XANAX [Concomitant]
     Active Substance: ALPRAZOLAM
     Indication: Anxiety
     Dosage: 0.5 MG
     Route: 048
     Dates: start: 20231013

REACTIONS (4)
  - Hypersensitivity [Unknown]
  - Pruritus [None]
  - Flushing [None]
  - Urticaria [None]
